FAERS Safety Report 8403282-4 (Version None)
Quarter: 2012Q2

REPORT INFORMATION
  Report Type: 
  Country: None (occurrence: None)
  Receive Date: 20120601
  Receipt Date: 20120523
  Transmission Date: 20120825
  Serious: Yes (Other)
  Sender: FDA-Public Use
  Company Number: GB-ABBOTT-12P-167-0904880-00

PATIENT
  Sex: Male
  Weight: 113 kg

DRUGS (2)
  1. AMITRIPTYLINE HCL [Concomitant]
     Indication: PRODUCT USED FOR UNKNOWN INDICATION
  2. HUMIRA [Suspect]
     Indication: PSORIASIS
     Route: 058
     Dates: start: 20110909, end: 20111111

REACTIONS (3)
  - MELANOCYTIC NAEVUS [None]
  - MALIGNANT MELANOMA [None]
  - SUPERFICIAL SPREADING MELANOMA STAGE UNSPECIFIED [None]
